FAERS Safety Report 4763645-5 (Version None)
Quarter: 2005Q3

REPORT INFORMATION
  Report Type: 
  Country: None (occurrence: None)
  Receive Date: 20050908
  Receipt Date: 20050826
  Transmission Date: 20060218
  Serious: Yes (Hospitalization)
  Sender: FDA-Public Use
  Company Number: 2005SE04880

PATIENT
  Age: 68 Year
  Sex: Male

DRUGS (13)
  1. ATACAND [Suspect]
     Route: 048
     Dates: start: 20050101, end: 20050622
  2. HERACILLIN [Suspect]
     Indication: LOCALISED INFECTION
     Route: 048
     Dates: start: 20050301, end: 20050622
  3. SIMVASTATIN [Suspect]
     Route: 048
     Dates: end: 20050622
  4. WARAN [Suspect]
     Route: 048
     Dates: end: 20050622
  5. INSULATARD NPH HUMAN [Concomitant]
  6. EMCONCOR [Concomitant]
     Route: 048
  7. LANACRIST [Concomitant]
     Route: 048
  8. FUROSEMIDE [Concomitant]
     Route: 048
  9. EMGESAN [Concomitant]
     Route: 048
  10. IMDUR [Concomitant]
  11. IMOVANE [Concomitant]
     Route: 048
  12. TRIOBE [Concomitant]
  13. NOVORAPID [Concomitant]

REACTIONS (3)
  - BLOOD BILIRUBIN INCREASED [None]
  - INTERNATIONAL NORMALISED RATIO INCREASED [None]
  - NEPHRITIS INTERSTITIAL [None]
